FAERS Safety Report 13889326 (Version 1)
Quarter: 2017Q3

REPORT INFORMATION
  Report Type: Spontaneous
  Country: US (occurrence: US)
  Receive Date: 20170822
  Receipt Date: 20170822
  Transmission Date: 20171127
  Serious: No
  Sender: FDA-Public Use
  Company Number: US-ROCHE-1506354

PATIENT
  Age: 23 Year
  Sex: Female

DRUGS (3)
  1. BACLOFEN. [Concomitant]
     Active Substance: BACLOFEN
  2. PREDNISONE. [Concomitant]
     Active Substance: PREDNISONE
  3. ACTEMRA [Suspect]
     Active Substance: TOCILIZUMAB
     Indication: SCLERODERMA
     Route: 042

REACTIONS (6)
  - Pain [Unknown]
  - Feeling hot [Unknown]
  - Aggression [Unknown]
  - Feeling jittery [Unknown]
  - Fatigue [Unknown]
  - Discomfort [Unknown]
